FAERS Safety Report 9419891 (Version 1)
Quarter: 2013Q3

REPORT INFORMATION
  Report Type: Spontaneous
  Country: US (occurrence: None)
  Receive Date: 20130723
  Receipt Date: 20130723
  Transmission Date: 20140515
  Serious: Yes (Other)
  Sender: FDA-Public Use
  Company Number: None

PATIENT
  Age: 68 Year
  Sex: Female
  Weight: 56.25 kg

DRUGS (4)
  1. QVAR [Suspect]
     Indication: BRONCHIECTASIS
     Dosage: 2 PUFFS 1X / DAY NASAL
     Route: 045
     Dates: start: 20130228, end: 20130711
  2. ALVESCO [Suspect]
     Indication: BRONCHIECTASIS
     Dosage: 2 PUFFS 1X / DAY NASAL
     Dates: start: 20121128, end: 20130227
  3. ALVESCO [Concomitant]
  4. QVAR [Concomitant]

REACTIONS (4)
  - Rash [None]
  - Rash [None]
  - Rash [None]
  - Intraocular pressure increased [None]
